FAERS Safety Report 25020540 (Version 1)
Quarter: 2025Q1

REPORT INFORMATION
  Report Type: Spontaneous
  Country: NZ (occurrence: NZ)
  Receive Date: 20250227
  Receipt Date: 20250227
  Transmission Date: 20250409
  Serious: Yes (Other)
  Sender: GE HEALTHCARE
  Company Number: NZ-GE HEALTHCARE-2025CSU002295

PATIENT
  Age: 36 Year
  Sex: Male
  Weight: 87.5 kg

DRUGS (1)
  1. OMNIPAQUE [Suspect]
     Active Substance: IOHEXOL
     Indication: Computerised tomogram heart
     Route: 042
     Dates: start: 20250225

REACTIONS (6)
  - Sinonasal obstruction [Recovering/Resolving]
  - Oropharyngeal discomfort [Recovering/Resolving]
  - Sneezing [Recovering/Resolving]
  - Throat tightness [Recovering/Resolving]
  - Eye pain [Recovering/Resolving]
  - Urticaria [Recovering/Resolving]

NARRATIVE: CASE EVENT DATE: 20250225
